FAERS Safety Report 14882757 (Version 2)
Quarter: 2019Q2

REPORT INFORMATION
  Report Type: Spontaneous
  Country: CA (occurrence: CA)
  Receive Date: 20180511
  Receipt Date: 20190620
  Transmission Date: 20190711
  Serious: Yes (Hospitalization, Other)
  Sender: FDA-Public Use
  Company Number: CA-MYLANLABS-2018M1031026

PATIENT
  Age: 6 Year
  Sex: Female

DRUGS (5)
  1. PREDNISONE. [Interacting]
     Active Substance: PREDNISONE
     Indication: HODGKIN^S DISEASE
     Dosage: 60 MG/M2/DAY ON DAYS 1-15
     Route: 048
  2. ETOPOSIDE. [Suspect]
     Active Substance: ETOPOSIDE
     Indication: HODGKIN^S DISEASE
     Dosage: 125 MG/M2/DOSE ON DAYS 1-5
     Route: 042
  3. VINCRISTINE [Interacting]
     Active Substance: VINCRISTINE
     Indication: HODGKIN^S DISEASE
     Dosage: 1.5 MG/M2/DOSE ON DAYS 1, 8 AND 15
     Route: 042
  4. DOXORUBICIN [Interacting]
     Active Substance: DOXORUBICIN
     Indication: HODGKIN^S DISEASE
     Dosage: 40 MG/M2 ON DAYS 1 AND 15
     Route: 042
  5. COLCHICINE. [Interacting]
     Active Substance: COLCHICINE
     Indication: FAMILIAL MEDITERRANEAN FEVER
     Dosage: .3 MILLIGRAM
     Route: 048

REACTIONS (6)
  - Drug interaction [Recovered/Resolved]
  - Neutropenia [Recovered/Resolved]
  - Sepsis [Recovered/Resolved]
  - Bone marrow failure [Recovered/Resolved]
  - Abdominal pain [Recovered/Resolved]
  - Diarrhoea [Recovered/Resolved]
